FAERS Safety Report 23691643 (Version 1)
Quarter: 2024Q2

REPORT INFORMATION
  Report Type: Spontaneous
  Country: US (occurrence: None)
  Receive Date: 20240401
  Receipt Date: 20240401
  Transmission Date: 20240716
  Serious: Yes (Other)
  Sender: FDA-Public Use
  Company Number: US-ROCHE-3529676

PATIENT
  Sex: Female

DRUGS (1)
  1. OCREVUS [Suspect]
     Active Substance: OCRELIZUMAB
     Indication: Relapsing-remitting multiple sclerosis
     Route: 065

REACTIONS (8)
  - Pancreatitis [Unknown]
  - Headache [Unknown]
  - Palpitations [Unknown]
  - Feeling abnormal [Unknown]
  - Inflammation [Unknown]
  - Pain [Unknown]
  - Back pain [Unknown]
  - Muscle injury [Unknown]
